FAERS Safety Report 8240283-3 (Version None)
Quarter: 2012Q1

REPORT INFORMATION
  Report Type: 
  Country: None (occurrence: None)
  Receive Date: 20120328
  Receipt Date: 20120328
  Transmission Date: 20120608
  Serious: No
  Sender: FDA-Public Use
  Company Number: None

PATIENT
  Age: 29 Year
  Sex: Female
  Weight: 61.234 kg

DRUGS (1)
  1. CIPROFLOXACIN [Suspect]
     Indication: GASTRIC INFECTION
     Dosage: 500 MG
     Route: 048
     Dates: start: 20110701, end: 20110705

REACTIONS (11)
  - IMPAIRED WORK ABILITY [None]
  - IMPAIRED DRIVING ABILITY [None]
  - HYPOAESTHESIA [None]
  - TOXICITY TO VARIOUS AGENTS [None]
  - PARAESTHESIA [None]
  - MUSCULOSKELETAL PAIN [None]
  - MUSCULAR WEAKNESS [None]
  - TENDONITIS [None]
  - PAIN IN EXTREMITY [None]
  - BACK PAIN [None]
  - ABASIA [None]
